FAERS Safety Report 4687090-6 (Version None)
Quarter: 2005Q2

REPORT INFORMATION
  Report Type: 
  Country: None (occurrence: None)
  Receive Date: 20050608
  Receipt Date: 20050525
  Transmission Date: 20051028
  Serious: Yes (Other)
  Sender: FDA-Public Use
  Company Number: 2002054132

PATIENT
  Sex: 0

DRUGS (2)
  1. NEURONTIN [Suspect]
     Indication: EPILEPSY
  2. VALPROIC ACID [Suspect]
     Indication: ILL-DEFINED DISORDER

REACTIONS (2)
  - DRUG EXPOSURE DURING PREGNANCY [None]
  - HYPOSPADIAS [None]
